FAERS Safety Report 19866051 (Version 2)
Quarter: 2021Q4

REPORT INFORMATION
  Report Type: Spontaneous
  Country: JP (occurrence: JP)
  Receive Date: 20210921
  Receipt Date: 20211130
  Transmission Date: 20220303
  Serious: Yes (Death, Life-Threatening)
  Sender: FDA-Public Use
  Company Number: JP-DSJP-DSJ-2021-130250

PATIENT
  Age: 84 Year
  Sex: Male

DRUGS (7)
  1. PRASUGREL HYDROCHLORIDE [Suspect]
     Active Substance: PRASUGREL HYDROCHLORIDE
     Indication: Acute myocardial infarction
     Dosage: 20 MG, QD
     Route: 048
     Dates: start: 20201001, end: 20201001
  2. SITAGLIPTIN [Concomitant]
     Active Substance: SITAGLIPTIN
     Indication: Diabetes mellitus
     Dosage: 50 MG, QD
     Route: 048
  3. NOVORAPID [Concomitant]
     Active Substance: INSULIN ASPART
     Indication: Diabetes mellitus
     Dosage: MORNING 7, AFTERNOON 7, EVENING 8, TID
     Route: 058
  4. TRESIBA [Concomitant]
     Active Substance: INSULIN DEGLUDEC
     Indication: Diabetes mellitus
     Dosage: MORNING 20, QD
     Route: 058
  5. ASPIRIN [Concomitant]
     Active Substance: ASPIRIN
     Indication: Acute myocardial infarction
     Dosage: 200 MG, QD
     Route: 048
     Dates: start: 20201001
  6. HEPARIN [Concomitant]
     Active Substance: HEPARIN SODIUM
     Indication: Acute myocardial infarction
     Dosage: 2000?4000, BID
     Route: 042
     Dates: start: 20201001
  7. OMNIPAQUE [Concomitant]
     Active Substance: IOHEXOL
     Indication: Acute myocardial infarction
     Dosage: 21-8, AS NEEDED
     Route: 013
     Dates: start: 20201001

REACTIONS (3)
  - Haemothorax [Fatal]
  - Cardiac perforation [Fatal]
  - Sneezing [Unknown]

NARRATIVE: CASE EVENT DATE: 20201001
